FAERS Safety Report 21445061 (Version 1)
Quarter: 2022Q4

REPORT INFORMATION
  Report Type: Spontaneous
  Country: US (occurrence: US)
  Receive Date: 20221012
  Receipt Date: 20221012
  Transmission Date: 20230113
  Serious: No
  Sender: FDA-Public Use
  Company Number: US-TAKEDA-2022TUS070442

PATIENT

DRUGS (1)
  1. VYVANSE [Suspect]
     Active Substance: LISDEXAMFETAMINE DIMESYLATE
     Indication: Attention deficit hyperactivity disorder
     Dosage: 30 MILLIGRAM
     Route: 065

REACTIONS (5)
  - Head discomfort [Recovered/Resolved]
  - Memory impairment [Unknown]
  - Cognitive disorder [Unknown]
  - Vision blurred [Unknown]
  - Mydriasis [Unknown]
